FAERS Safety Report 5576015-7 (Version None)
Quarter: 2007Q4

REPORT INFORMATION
  Report Type: 
  Country: None (occurrence: None)
  Receive Date: 20071228
  Receipt Date: 20071219
  Transmission Date: 20080405
  Serious: Yes (Other)
  Sender: FDA-Public Use
  Company Number: PHBS2007JP21396

PATIENT
  Age: 55 Year
  Sex: Female

DRUGS (2)
  1. LUDIOMIL [Suspect]
     Indication: DEPRESSION
     Dosage: 25 MG, TID
     Route: 048
  2. LUDIOMIL [Suspect]
     Dosage: 10 MG, TID
     Route: 048

REACTIONS (4)
  - CHEST DISCOMFORT [None]
  - MONOPLEGIA [None]
  - SOMNOLENCE [None]
  - TONGUE PARALYSIS [None]
